FAERS Safety Report 10535943 (Version 2)
Quarter: 2014Q4

REPORT INFORMATION
  Report Type: Spontaneous
  Country: US (occurrence: US)
  Receive Date: 20141022
  Receipt Date: 20141022
  Transmission Date: 20150529
  Serious: Yes (Hospitalization)
  Sender: FDA-Public Use
  Company Number: US-RECKITT BENCKISER PHARMACEUTICAL, INC-RB-60681-2013

PATIENT

DRUGS (6)
  1. SUBOXONE [Suspect]
     Active Substance: BUPRENORPHINE HYDROCHLORIDE\NALOXONE HYDROCHLORIDE
     Dosage: SUBOXONE FILM; TAKING ONE 8 MG STRIP AND 1/2 OF 2 MG STRIP TO ACHIEVE 9 MG DAILY
     Route: 060
     Dates: start: 201310, end: 201310
  2. OXYCONTIN [Concomitant]
     Active Substance: OXYCODONE HYDROCHLORIDE
     Indication: PRODUCT USED FOR UNKNOWN INDICATION
     Dosage: VARIOUS DOSES
     Route: 048
     Dates: start: 201309, end: 201310
  3. VARIOUS OPIOIDS [Concomitant]
     Active Substance: UNSPECIFIED INGREDIENT
     Indication: PRODUCT USED FOR UNKNOWN INDICATION
     Dosage: VARIOUS DOSES
     Route: 048
     Dates: start: 2003, end: 201309
  4. SUBOXONE [Suspect]
     Active Substance: BUPRENORPHINE HYDROCHLORIDE\NALOXONE HYDROCHLORIDE
     Dosage: SUBOXONE FILM
     Route: 060
     Dates: start: 201310
  5. SUBOXONE [Suspect]
     Active Substance: BUPRENORPHINE HYDROCHLORIDE\NALOXONE HYDROCHLORIDE
     Indication: DRUG DEPENDENCE
     Dosage: SUBOXONE FILM; VARIOUS DOSES
     Route: 060
     Dates: start: 201307, end: 201310
  6. SUBOXONE [Suspect]
     Active Substance: BUPRENORPHINE HYDROCHLORIDE\NALOXONE HYDROCHLORIDE
     Dosage: SUBOXONE FILM; TAKING 1 AND 1/2 OF 2 MG STRIPS FOR 3 MG DOSAGE FOR INDUCTION
     Route: 060
     Dates: start: 201310, end: 201310

REACTIONS (6)
  - Wrong technique in drug usage process [Recovered/Resolved]
  - Drug detoxification [Recovered/Resolved]
  - Therapeutic response unexpected [Not Recovered/Not Resolved]
  - Substance abuse [Not Recovered/Not Resolved]
  - Back pain [Recovered/Resolved]
  - Off label use [Recovered/Resolved]

NARRATIVE: CASE EVENT DATE: 201307
